FAERS Safety Report 7136350-8 (Version None)
Quarter: 2010Q4

REPORT INFORMATION
  Report Type: 
  Country: None (occurrence: None)
  Receive Date: 20101206
  Receipt Date: 20101124
  Transmission Date: 20110411
  Serious: No
  Sender: FDA-Public Use
  Company Number: US-BIOGENIDEC-2010BI041926

PATIENT
  Age: 27 Year
  Sex: Female

DRUGS (8)
  1. TYSABRI [Suspect]
     Indication: MULTIPLE SCLEROSIS
     Route: 042
     Dates: start: 20070803, end: 20100604
  2. ZOLOFT [Concomitant]
     Indication: DEPRESSION
     Route: 048
     Dates: start: 20050101
  3. XALATAN [Concomitant]
     Indication: NORMAL TENSION GLAUCOMA
     Route: 047
     Dates: start: 20040101
  4. AMANTADINE [Concomitant]
     Indication: FATIGUE
     Route: 048
     Dates: end: 20100901
  5. NEURONTIN [Concomitant]
     Indication: NEURALGIA
     Route: 048
     Dates: start: 20040101
  6. BACLOFEN [Concomitant]
     Indication: NEURALGIA
     Route: 048
  7. LORTAB [Concomitant]
     Indication: NEURALGIA
     Route: 048
  8. MOBIC [Concomitant]
     Indication: NEURALGIA
     Route: 048

REACTIONS (2)
  - MICTURITION URGENCY [None]
  - URINARY RETENTION [None]
